FAERS Safety Report 24084209 (Version 1)
Quarter: 2024Q3

REPORT INFORMATION
  Report Type: Spontaneous
  Country: JP (occurrence: JP)
  Receive Date: 20240712
  Receipt Date: 20240712
  Transmission Date: 20241017
  Serious: No
  Sender: PIERRE FABRE MEDICAMENT
  Company Number: JP-PFM-2022-03235

PATIENT
  Age: 0 Year
  Sex: Female
  Weight: 3 kg

DRUGS (6)
  1. PROPRANOLOL HYDROCHLORIDE [Suspect]
     Active Substance: PROPRANOLOL HYDROCHLORIDE
     Indication: Infantile haemangioma
     Dosage: 1 MG/KG (0.5 MG/KG/12 HOURS)
     Route: 048
     Dates: start: 20220330, end: 20220331
  2. PROPRANOLOL HYDROCHLORIDE [Suspect]
     Active Substance: PROPRANOLOL HYDROCHLORIDE
     Dosage: 0.5 MG/KG/DAY
     Route: 048
     Dates: start: 20220401, end: 20220401
  3. PROPRANOLOL HYDROCHLORIDE [Suspect]
     Active Substance: PROPRANOLOL HYDROCHLORIDE
     Dosage: 1 MG/KG/DAY
     Route: 048
     Dates: start: 20220401, end: 20220401
  4. PROPRANOLOL HYDROCHLORIDE [Suspect]
     Active Substance: PROPRANOLOL HYDROCHLORIDE
     Dosage: 1 MG/KG, BID (2/DAY)
     Route: 048
     Dates: start: 20220402, end: 20220402
  5. PROPRANOLOL HYDROCHLORIDE [Suspect]
     Active Substance: PROPRANOLOL HYDROCHLORIDE
     Dosage: 0.5 MG/KG, BID (2/DAY)
     Route: 048
     Dates: start: 20220403, end: 20220404
  6. PROPRANOLOL HYDROCHLORIDE [Suspect]
     Active Substance: PROPRANOLOL HYDROCHLORIDE
     Dosage: 0.4 MG/KG, BID (2/DAY)
     Route: 048
     Dates: start: 20220405

REACTIONS (2)
  - Platelet count increased [Recovered/Resolved]
  - Bradycardia [Recovered/Resolved]

NARRATIVE: CASE EVENT DATE: 20220401
